FAERS Safety Report 4274309-9 (Version None)
Quarter: 2004Q1

REPORT INFORMATION
  Report Type: 
  Country: None (occurrence: None)
  Receive Date: 20040115
  Receipt Date: 20040107
  Transmission Date: 20041129
  Serious: Yes (Hospitalization, Other)
  Sender: FDA-Public Use
  Company Number: 2004001306

PATIENT
  Sex: Male

DRUGS (9)
  1. CEREBYX [Suspect]
     Indication: ILL-DEFINED DISORDER
     Dosage: INTRAVENOUS
     Route: 042
  2. LEVOFLOXACIN [Concomitant]
  3. HEPARIN-FRACTION, SODIUM SALT (HEPARIN-FRACTION, SODIUM SALT) [Concomitant]
  4. FUROSEMIDE [Concomitant]
  5. METHYLPREDNISOLONE [Concomitant]
  6. METOCLOPRAMIDE [Concomitant]
  7. DIGOXIN [Concomitant]
  8. PANTOPRAZOLE (PANTOPRAZOLE) [Concomitant]
  9. AZTREONAM (AZTREONAM) [Concomitant]

REACTIONS (2)
  - CARDIAC FAILURE CONGESTIVE [None]
  - RASH [None]
